FAERS Safety Report 7012984-6 (Version None)
Quarter: 2010Q3

REPORT INFORMATION
  Report Type: 
  Country: None (occurrence: None)
  Receive Date: 20100924
  Receipt Date: 20100915
  Transmission Date: 20110219
  Serious: Yes (Other)
  Sender: FDA-Public Use
  Company Number: SE-ASTRAZENECA-2010SE44685

PATIENT
  Age: 57 Year
  Sex: Female

DRUGS (4)
  1. OMEPRAZOLE [Suspect]
     Dosage: 20-40 MG DAILY
     Route: 048
     Dates: start: 20000101
  2. PREDNISOLONE [Suspect]
     Indication: RHEUMATOID ARTHRITIS
  3. ALENDRONATE SODIUM [Suspect]
     Dates: start: 20010101, end: 20010101
  4. RISEDRONATE SODIUM [Suspect]
     Dates: start: 20020101, end: 20090101

REACTIONS (1)
  - FEMUR FRACTURE [None]
